FAERS Safety Report 6864911-X (Version None)
Quarter: 2010Q3

REPORT INFORMATION
  Report Type: 
  Country: None (occurrence: None)
  Receive Date: 20100721
  Receipt Date: 20080921
  Transmission Date: 20110219
  Serious: Yes (Other)
  Sender: FDA-Public Use
  Company Number: US-PFIZER INC-2008031453

PATIENT
  Sex: Male

DRUGS (10)
  1. CHANTIX [Interacting]
     Indication: SMOKING CESSATION THERAPY
  2. NITROGLYCERIN [Suspect]
     Indication: CHEST PAIN
  3. NITROGLYCERIN [Suspect]
     Indication: HYPERTENSION
  4. AMPHETAMINES [Interacting]
  5. TIZANIDINE HCL [Concomitant]
  6. FISH OIL [Concomitant]
  7. FOLIC ACID [Concomitant]
  8. LISINOPRIL [Concomitant]
  9. METOPROLOL [Concomitant]
  10. ACETYLSALICYLIC ACID [Concomitant]

REACTIONS (25)
  - AORTIC ANEURYSM [None]
  - BLOOD CHOLESTEROL [None]
  - CHEST PAIN [None]
  - CHRONIC FATIGUE SYNDROME [None]
  - CHRONIC OBSTRUCTIVE PULMONARY DISEASE [None]
  - CONVULSION [None]
  - CORONARY ARTERY DISEASE [None]
  - DIVERTICULUM [None]
  - DRUG INEFFECTIVE [None]
  - DRUG INTERACTION [None]
  - EMPHYSEMA [None]
  - EPILEPSY [None]
  - HEPATIC MASS [None]
  - HIATUS HERNIA [None]
  - HYPERSENSITIVITY [None]
  - HYPERTENSION [None]
  - LOWER LIMB FRACTURE [None]
  - NARCOLEPSY [None]
  - NEPHROPATHY [None]
  - PAIN [None]
  - PAINFUL ERECTION [None]
  - PANIC ATTACK [None]
  - SLEEP APNOEA SYNDROME [None]
  - SLEEP DISORDER [None]
  - THERAPEUTIC RESPONSE UNEXPECTED [None]
